FAERS Safety Report 17868299 (Version 2)
Quarter: 2020Q3

REPORT INFORMATION
  Report Type: Report from Study
  Country: None (occurrence: US)
  Receive Date: 20200606
  Receipt Date: 20200811
  Transmission Date: 20201103
  Serious: Yes (Hospitalization, Other)
  Sender: FDA-Public Use
  Company Number: US-ABBVIE-20K-163-3426804-00

PATIENT
  Age: 72 Year
  Sex: Female
  Weight: 108.51 kg

DRUGS (4)
  1. HUMIRA [Suspect]
     Active Substance: ADALIMUMAB
     Dosage: CITRATE FREE
     Route: 058
     Dates: start: 20200312
  2. ELIQUIS [Concomitant]
     Active Substance: APIXABAN
     Indication: PRODUCT USED FOR UNKNOWN INDICATION
  3. HUMIRA [Suspect]
     Active Substance: ADALIMUMAB
     Indication: PSORIASIS
     Dosage: CITRATE FREE
     Route: 058
     Dates: end: 201903
  4. HUMIRA [Suspect]
     Active Substance: ADALIMUMAB
     Dosage: CITRATE FREE
     Route: 058
     Dates: start: 2019, end: 20191205

REACTIONS (10)
  - Knee operation [Recovering/Resolving]
  - Cystitis [Unknown]
  - Stress [Unknown]
  - Staphylococcal infection [Recovered/Resolved]
  - Joint swelling [Recovering/Resolving]
  - Post procedural haematoma [Unknown]
  - Atrial fibrillation [Unknown]
  - Arthralgia [Recovering/Resolving]
  - Psoriasis [Not Recovered/Not Resolved]
  - Anxiety [Unknown]

NARRATIVE: CASE EVENT DATE: 20191208
